FAERS Safety Report 9502430 (Version 1)
Quarter: 2013Q3

REPORT INFORMATION
  Report Type: Spontaneous
  Country: CA (occurrence: CA)
  Receive Date: 20130906
  Receipt Date: 20130906
  Transmission Date: 20140515
  Serious: Yes (Hospitalization)
  Sender: FDA-Public Use
  Company Number: CA-ROCHE-1269884

PATIENT
  Age: 78 Year
  Sex: Female
  Weight: 47 kg

DRUGS (6)
  1. ROCEPHIN [Suspect]
     Indication: PRODUCT USED FOR UNKNOWN INDICATION
     Dosage: THERAPY DURATION: 8.0 DAYS, POWDER FOR SOLUTION INTRAMUSCULAR
     Route: 042
  2. BIAXIN XL [Suspect]
     Indication: PRODUCT USED FOR UNKNOWN INDICATION
     Dosage: THERAPY DURATION: 10.0 DAYS, EXTENDED RELEASE TABLET
     Route: 048
  3. BIAXIN XL [Suspect]
     Dosage: THERAPY DURATION: 10.0 DAYS
     Route: 048
  4. CEFZIL [Suspect]
     Indication: PRODUCT USED FOR UNKNOWN INDICATION
     Dosage: THERAPY DURATION: 3.0 DAYS
     Route: 048
  5. LEVAQUIN [Suspect]
     Indication: PRODUCT USED FOR UNKNOWN INDICATION
     Dosage: THERAPY DURATION: 3.0 DAYS
     Route: 048
  6. LEVAQUIN [Suspect]
     Route: 048

REACTIONS (8)
  - Alanine aminotransferase increased [Recovered/Resolved]
  - Aspartate aminotransferase increased [Recovered/Resolved]
  - Blood alkaline phosphatase increased [Recovered/Resolved]
  - Decreased appetite [Recovered/Resolved]
  - Drug-induced liver injury [Recovered/Resolved]
  - Gamma-glutamyltransferase increased [Recovered/Resolved]
  - Nausea [Recovered/Resolved]
  - Pyrexia [Recovered/Resolved]
